FAERS Safety Report 7960626-5 (Version None)
Quarter: 2011Q4

REPORT INFORMATION
  Report Type: 
  Country: None (occurrence: None)
  Receive Date: 20111206
  Receipt Date: 20111129
  Transmission Date: 20120403
  Serious: No
  Sender: FDA-Public Use
  Company Number: US-B.I. PHARMACEUTICALS,INC./RIDGEFIELD-2011-BP-26993BP

PATIENT
  Age: 38 Year
  Sex: Male

DRUGS (2)
  1. ULTRAM [Concomitant]
     Indication: HEAD INJURY
  2. MICARDIS [Suspect]
     Indication: HYPERTENSION
     Dosage: 40 MG
     Route: 048
     Dates: start: 20111115

REACTIONS (1)
  - LIBIDO DECREASED [None]
